FAERS Safety Report 17251321 (Version 2)
Quarter: 2020Q3

REPORT INFORMATION
  Report Type: Report from Study
  Country: JP (occurrence: JP)
  Receive Date: 20200109
  Receipt Date: 20200203
  Transmission Date: 20201105
  Serious: Yes (Hospitalization)
  Sender: FDA-Public Use
  Company Number: JP-ROCHE-2518980

PATIENT
  Age: 35 Year
  Sex: Male

DRUGS (2)
  1. EMICIZUMAB. [Suspect]
     Active Substance: EMICIZUMAB
     Indication: HAEMOPHILIA A WITH ANTI FACTOR VIII
     Route: 058
     Dates: start: 20180622
  2. EMICIZUMAB. [Suspect]
     Active Substance: EMICIZUMAB
     Route: 058

REACTIONS (1)
  - Knee arthroplasty [Recovering/Resolving]
